FAERS Safety Report 20904909 (Version 1)
Quarter: 2022Q2

REPORT INFORMATION
  Report Type: Spontaneous
  Country: KR (occurrence: KR)
  Receive Date: 20220602
  Receipt Date: 20220602
  Transmission Date: 20220720
  Serious: Yes (Other)
  Sender: FDA-Public Use
  Company Number: KR-VALIDUS PHARMACEUTICALS LLC-KR-VDP-2022-015550

PATIENT

DRUGS (2)
  1. CEFOTAXIME SODIUM [Suspect]
     Active Substance: CEFOTAXIME SODIUM
     Indication: Device related infection
     Dosage: 50 MG/KG, QID
     Route: 065
  2. MEROPENEM [Suspect]
     Active Substance: MEROPENEM
     Indication: Device related infection
     Dosage: 40 MG/KG, Q8H
     Route: 042

REACTIONS (4)
  - Seizure [Unknown]
  - Drug ineffective [Unknown]
  - Mental disorder [Unknown]
  - Pyrexia [Unknown]
